FAERS Safety Report 9289980 (Version 1)
Quarter: 2013Q2

REPORT INFORMATION
  Report Type: Spontaneous
  Country: SE (occurrence: SE)
  Receive Date: 20130515
  Receipt Date: 20130515
  Transmission Date: 20140414
  Serious: Yes (Other)
  Sender: FDA-Public Use
  Company Number: SE-JNJFOC-20130503192

PATIENT
  Age: 15 Year
  Sex: Male

DRUGS (3)
  1. CONCERTA [Suspect]
     Indication: AUTISM
     Route: 048
     Dates: start: 201208
  2. CONCERTA [Suspect]
     Indication: ATTENTION DEFICIT/HYPERACTIVITY DISORDER
     Route: 048
     Dates: start: 201208
  3. CIRCADIN [Concomitant]
     Indication: SLEEP DISORDER
     Route: 065

REACTIONS (6)
  - Epilepsy [Unknown]
  - Arthralgia [Unknown]
  - Migraine [Unknown]
  - Cyst [Unknown]
  - Nausea [Unknown]
  - Dizziness [Unknown]
